FAERS Safety Report 14251158 (Version 2)
Quarter: 2017Q4

REPORT INFORMATION
  Report Type: Report from Study
  Country: GB (occurrence: GB)
  Receive Date: 20171205
  Receipt Date: 20171227
  Transmission Date: 20180321
  Serious: Yes (Other)
  Sender: FDA-Public Use
  Company Number: GB-UCBSA-2017017927

PATIENT
  Sex: Female

DRUGS (5)
  1. BRIVARACETAM [Suspect]
     Active Substance: BRIVARACETAM
     Indication: EPILEPSY
     Dosage: UNK
     Dates: start: 201702, end: 201702
  2. BRIVARACETAM [Suspect]
     Active Substance: BRIVARACETAM
     Dosage: UPTITRATED TO 50 MG, 2X/DAY (BID)
     Dates: start: 201702, end: 201702
  3. BRIVARACETAM [Suspect]
     Active Substance: BRIVARACETAM
     Dosage: 25 MG, 2X/DAY (BID)
     Dates: start: 20170217, end: 201706
  4. BRIVARACETAM [Suspect]
     Active Substance: BRIVARACETAM
     Dosage: 25 MG, 2X/DAY (BID)
     Dates: start: 201702, end: 201702
  5. BRIVARACETAM [Suspect]
     Active Substance: BRIVARACETAM
     Dosage: 100 MG, 2X/DAY (BID)
     Dates: start: 201702, end: 201702

REACTIONS (5)
  - Personality change [Recovered/Resolved]
  - Aggression [Recovered/Resolved]
  - Off label use [Unknown]
  - Drug dose omission [Unknown]
  - Drug ineffective [Unknown]

NARRATIVE: CASE EVENT DATE: 2017
